FAERS Safety Report 11676964 (Version 1)
Quarter: 2015Q4

REPORT INFORMATION
  Report Type: Other
  Country: TN (occurrence: TN)
  Receive Date: 20151028
  Receipt Date: 20151028
  Transmission Date: 20160304
  Serious: Yes (Hospitalization, Other)
  Sender: FDA-Public Use
  Company Number: TN-COR_00412_2015

PATIENT
  Age: 4 Year
  Sex: Male
  Weight: 15 kg

DRUGS (3)
  1. CYCLOPHOSPHAMIDE. [Suspect]
     Active Substance: CYCLOPHOSPHAMIDE
     Indication: B-CELL TYPE ACUTE LEUKAEMIA
     Dosage: 1800 MG AS TOTAL DOSE IN 2 DAYS
  2. BUSULFAN [Suspect]
     Active Substance: BUSULFAN
     Indication: B-CELL TYPE ACUTE LEUKAEMIA
     Dosage: 288 MG AS TOTAL DOSE IN 4 DAYS
  3. ETOPOSIDE. [Suspect]
     Active Substance: ETOPOSIDE
     Indication: B-CELL TYPE ACUTE LEUKAEMIA
     Dosage: 600 MG IN ONE DOSE

REACTIONS (3)
  - Lactic acidosis [Unknown]
  - Vitamin B complex deficiency [Unknown]
  - Bone marrow toxicity [Unknown]
